FAERS Safety Report 4690084-8 (Version None)
Quarter: 2005Q2

REPORT INFORMATION
  Report Type: 
  Country: None (occurrence: None)
  Receive Date: 20050614
  Receipt Date: 20050531
  Transmission Date: 20051028
  Serious: Yes (Hospitalization)
  Sender: FDA-Public Use
  Company Number: BRO-008680

PATIENT
  Age: 73 Year
  Sex: Female

DRUGS (9)
  1. IOPAMIDOL-300 [Suspect]
     Indication: ANGIOGRAM
     Dosage: 50 ML, IA
     Route: 013
     Dates: start: 20050415, end: 20050415
  2. IOPAMIDOL-300 [Suspect]
     Indication: CAROTID ARTERY STENOSIS
     Dosage: 50 ML, IA
     Route: 013
     Dates: start: 20050415, end: 20050415
  3. IOPAMIDOL-300 [Suspect]
     Indication: CEREBRAL INFARCTION
     Dosage: 50 ML, IA
     Route: 013
     Dates: start: 20050415, end: 20050415
  4. IOPAMIDOL-300 [Suspect]
     Indication: COMPUTERISED TOMOGRAM
     Dosage: 50 ML, IA
     Route: 013
     Dates: start: 20050415, end: 20050415
  5. OMNIPAQUE 140 [Suspect]
     Indication: ANGIOGRAM
     Dosage: 100 ML, IV
     Route: 042
     Dates: start: 20050411, end: 20050411
  6. OMNIPAQUE 140 [Suspect]
     Indication: CAROTID ARTERY STENOSIS
     Dosage: 100 ML, IV
     Route: 042
     Dates: start: 20050411, end: 20050411
  7. OMNIPAQUE 140 [Suspect]
     Indication: CEREBRAL INFARCTION
     Dosage: 100 ML, IV
     Route: 042
     Dates: start: 20050411, end: 20050411
  8. OMNIPAQUE 140 [Suspect]
     Indication: COMPUTERISED TOMOGRAM
     Dosage: 100 ML, IV
     Route: 042
     Dates: start: 20050411, end: 20050411
  9. TICLOPIDINE HCL [Concomitant]

REACTIONS (6)
  - CONDITION AGGRAVATED [None]
  - CONTRAST MEDIA REACTION [None]
  - DRUG ERUPTION [None]
  - HEPATOTOXICITY [None]
  - PYREXIA [None]
  - SKIN TEST POSITIVE [None]
